FAERS Safety Report 5122034-4 (Version None)
Quarter: 2006Q4

REPORT INFORMATION
  Report Type: 
  Country: None (occurrence: None)
  Receive Date: 20061006
  Receipt Date: 20060926
  Transmission Date: 20070319
  Serious: Yes (Disabling)
  Sender: FDA-Public Use
  Company Number: US-SANOFI-SYNTHELABO-A03200605960

PATIENT
  Age: 60 Year
  Sex: Female

DRUGS (3)
  1. AMBIEN [Suspect]
     Indication: INSOMNIA
     Route: 048
     Dates: start: 20060701, end: 20060701
  2. HYPERTENSION MEDICATION NOS [Concomitant]
     Dosage: UNK
     Route: 065
  3. THYROID MEDICATION NOS [Concomitant]
     Dosage: UNK
     Route: 065

REACTIONS (5)
  - AMNESIA [None]
  - FALL [None]
  - MOTOR DYSFUNCTION [None]
  - SOMNOLENCE [None]
  - SPEECH DISORDER [None]
